FAERS Safety Report 9649416 (Version 1)
Quarter: 2013Q4

REPORT INFORMATION
  Report Type: Spontaneous
  Country: JP (occurrence: JP)
  Receive Date: 20131028
  Receipt Date: 20131028
  Transmission Date: 20140711
  Serious: Yes (Death, Other)
  Sender: FDA-Public Use
  Company Number: PHHY2013JP117503

PATIENT
  Age: 71 Year
  Sex: Male

DRUGS (4)
  1. 5-FLUOROURACIL [Suspect]
     Indication: COLORECTAL CANCER METASTATIC
  2. FOLINIC ACID [Suspect]
  3. OXALIPLATIN [Suspect]
     Indication: COLORECTAL CANCER METASTATIC
  4. BEVACIZUMAB [Suspect]
     Indication: COLORECTAL CANCER METASTATIC

REACTIONS (6)
  - Colorectal cancer metastatic [Fatal]
  - Metastases to liver [Fatal]
  - Malignant neoplasm progression [Fatal]
  - Hypothyroidism [Unknown]
  - Fatigue [Unknown]
  - Peripheral sensory neuropathy [Unknown]
